FAERS Safety Report 14331520 (Version 1)
Quarter: 2017Q4

REPORT INFORMATION
  Report Type: Spontaneous
  Country: US (occurrence: US)
  Receive Date: 20171228
  Receipt Date: 20171228
  Transmission Date: 20180321
  Serious: No
  Sender: FDA-Public Use
  Company Number: US-BAYER-2017-244785

PATIENT
  Age: 72 Year
  Sex: Male
  Weight: 63.99 kg

DRUGS (2)
  1. IRON [IRON] [Concomitant]
     Active Substance: IRON
  2. MIRALAX [Suspect]
     Active Substance: POLYETHYLENE GLYCOL 3350
     Indication: GASTROINTESTINAL DISORDER
     Route: 048
     Dates: start: 2002

REACTIONS (6)
  - Off label use [Unknown]
  - Inappropriate prescribing [Unknown]
  - Wrong dose [Unknown]
  - Product use issue [Unknown]
  - Drug ineffective [Unknown]
  - Circumstance or information capable of leading to medication error [Unknown]

NARRATIVE: CASE EVENT DATE: 2002
